FAERS Safety Report 13995809 (Version 2)
Quarter: 2017Q4

REPORT INFORMATION
  Report Type: Report from Study
  Country: None (occurrence: CO)
  Receive Date: 20170921
  Receipt Date: 20171027
  Transmission Date: 20180321
  Serious: Yes (Other)
  Sender: FDA-Public Use
  Company Number: CO-ABBVIE-17K-036-2106907-00

PATIENT
  Age: 61 Year
  Sex: Male
  Weight: 75 kg

DRUGS (1)
  1. HUMIRA [Suspect]
     Active Substance: ADALIMUMAB
     Indication: RHEUMATOID ARTHRITIS
     Route: 058
     Dates: start: 20090130, end: 20170825

REACTIONS (3)
  - Biopsy lip abnormal [Unknown]
  - Furuncle [Recovering/Resolving]
  - Lip injury [Recovering/Resolving]

NARRATIVE: CASE EVENT DATE: 201705
